FAERS Safety Report 7244125-4 (Version None)
Quarter: 2011Q1

REPORT INFORMATION
  Report Type: 
  Country: None (occurrence: None)
  Receive Date: 20110119
  Receipt Date: 20110119
  Transmission Date: 20110831
  Serious: No
  Sender: FDA-Public Use
  Company Number: None

PATIENT
  Age: 27 Year
  Sex: Female

DRUGS (2)
  1. METRONIDAZOLE 5 MG/ML HOSPIRA [Suspect]
     Indication: ENDOMETRITIS
     Dosage: 500 MG EVERY 8 HOURS IV DRIP
     Route: 041
     Dates: start: 20101104, end: 20101105
  2. CLINDAMYCIN [Concomitant]

REACTIONS (2)
  - RASH [None]
  - PRURITUS [None]
